FAERS Safety Report 6383272-6 (Version None)
Quarter: 2009Q3

REPORT INFORMATION
  Report Type: 
  Country: None (occurrence: None)
  Receive Date: 20090929
  Receipt Date: 20090916
  Transmission Date: 20100115
  Serious: Yes (Other)
  Sender: FDA-Public Use
  Company Number: 2009AP003778

PATIENT
  Sex: Male

DRUGS (1)
  1. CITALOPRAM HYDROBROMIDE [Suspect]
     Indication: RESTLESS LEGS SYNDROME
     Dosage: 20 MG; QD PO
     Route: 048
     Dates: start: 20081101, end: 20090901

REACTIONS (8)
  - AGITATION [None]
  - ANXIETY [None]
  - ASTHENIA [None]
  - CONFUSIONAL STATE [None]
  - DIZZINESS [None]
  - PALPITATIONS [None]
  - SENSORY DISTURBANCE [None]
  - TREMOR [None]
